FAERS Safety Report 18539098 (Version 1)
Quarter: 2020Q4

REPORT INFORMATION
  Report Type: Spontaneous
  Country: US (occurrence: US)
  Receive Date: 20201124
  Receipt Date: 20201124
  Transmission Date: 20210114
  Serious: Yes (Other)
  Sender: FDA-Public Use
  Company Number: NVSC2020US308087

PATIENT
  Sex: Male

DRUGS (2)
  1. METHYLPHENIDATE. [Suspect]
     Active Substance: METHYLPHENIDATE
     Indication: PRODUCT USED FOR UNKNOWN INDICATION
     Dosage: UNK
     Route: 042
  2. HEROIN [Concomitant]
     Active Substance: DIAMORPHINE
     Indication: PRODUCT USED FOR UNKNOWN INDICATION
     Dosage: UNK
     Route: 042

REACTIONS (11)
  - Productive cough [Unknown]
  - Pulmonary fibrosis [Unknown]
  - Lung disorder [Not Recovered/Not Resolved]
  - Dyspnoea exertional [Unknown]
  - Emphysema [Not Recovered/Not Resolved]
  - Drug abuse [Unknown]
  - Pleural thickening [Unknown]
  - Breath sounds abnormal [Unknown]
  - Respiratory failure [Not Recovered/Not Resolved]
  - Retinopathy [Unknown]
  - Incorrect route of product administration [Unknown]
